FAERS Safety Report 23220314 (Version 7)
Quarter: 2024Q2

REPORT INFORMATION
  Report Type: Report from Study
  Country: US (occurrence: US)
  Receive Date: 20231123
  Receipt Date: 20240511
  Transmission Date: 20240716
  Serious: No
  Sender: FDA-Public Use
  Company Number: US-ALXN-A202307174AA

PATIENT
  Sex: Male

DRUGS (4)
  1. ULTOMIRIS [Suspect]
     Active Substance: RAVULIZUMAB-CWVZ
     Indication: Myasthenia gravis
     Dosage: UNK
     Route: 065
     Dates: start: 20230525
  2. PYRIDOSTIGMINE [Concomitant]
     Active Substance: PYRIDOSTIGMINE
     Indication: Product used for unknown indication
     Dosage: UNK
     Route: 065
  3. PREDNISONE ACETATE [Concomitant]
     Active Substance: PREDNISONE ACETATE
     Indication: Product used for unknown indication
     Dosage: 80 MG, UNK
     Route: 065
  4. PREDNISONE ACETATE [Concomitant]
     Active Substance: PREDNISONE ACETATE
     Dosage: 20 MG, UNK
     Route: 065

REACTIONS (12)
  - Balance disorder [Not Recovered/Not Resolved]
  - Pain in extremity [Unknown]
  - Gait disturbance [Unknown]
  - Eye disorder [Unknown]
  - Spinal stenosis [Unknown]
  - Weight decreased [Unknown]
  - Dyspnoea exertional [Unknown]
  - Drug ineffective [Unknown]
  - Myalgia [Unknown]
  - Asthenia [Not Recovered/Not Resolved]
  - Back pain [Unknown]
  - Arthralgia [Unknown]
